FAERS Safety Report 9472156 (Version 1)
Quarter: 2013Q3

REPORT INFORMATION
  Report Type: Spontaneous
  Country: US (occurrence: None)
  Receive Date: 20130821
  Receipt Date: 20130821
  Transmission Date: 20140515
  Serious: Yes (Death)
  Sender: FDA-Public Use
  Company Number: None

PATIENT
  Age: 66 Year
  Sex: Male

DRUGS (5)
  1. SUTENT [Suspect]
     Indication: RENAL CANCER
     Route: 048
     Dates: start: 20130729, end: 20130819
  2. CARVEDILOL [Concomitant]
  3. ASA [Concomitant]
  4. KLOR-CON [Concomitant]
  5. VIT D3 [Concomitant]

REACTIONS (1)
  - Death [None]
